FAERS Safety Report 18623692 (Version 1)
Quarter: 2020Q4

REPORT INFORMATION
  Report Type: Spontaneous
  Country: US (occurrence: US)
  Receive Date: 20201216
  Receipt Date: 20201216
  Transmission Date: 20210114
  Serious: No
  Sender: FDA-Public Use
  Company Number: None

PATIENT
  Age: 46 Year
  Sex: Male
  Weight: 164.25 kg

DRUGS (8)
  1. BREO ELLIPTA 200-25 MCG/INH, IN [Concomitant]
  2. METHADONE HCL  10MG/ML, ORAL [Concomitant]
  3. BUSPIRONE HCL 15MG, ORAL [Concomitant]
  4. IMATINIB MESYLATE. [Suspect]
     Active Substance: IMATINIB MESYLATE
     Indication: GASTROINTESTINAL STROMAL TUMOUR
     Route: 048
     Dates: start: 20200729
  5. HYDROCHLOROTHIAZIDE 12.5MG, ORAL [Concomitant]
  6. METOPROLOL TARTRATE 25MG, ORAL [Concomitant]
  7. LOSARTAN POTASSIUM 50MG, ORAL [Concomitant]
  8. TRAZODONE HCL 100MG, ORAL [Concomitant]

REACTIONS (1)
  - Abdominal pain upper [None]

NARRATIVE: CASE EVENT DATE: 20201216
